FAERS Safety Report 18910672 (Version 2)
Quarter: 2021Q1

REPORT INFORMATION
  Report Type: Spontaneous
  Country: GR (occurrence: GR)
  Receive Date: 20210218
  Receipt Date: 20210308
  Transmission Date: 20210420
  Serious: Yes (Hospitalization, Other)
  Sender: FDA-Public Use
  Company Number: GR-009507513-2102GRC006405

PATIENT
  Age: 50 Year
  Sex: Female

DRUGS (2)
  1. CARVEDILEN [Concomitant]
     Indication: VARICOSE VEIN
     Dosage: 6,25MG
  2. ZEPATIER [Suspect]
     Active Substance: ELBASVIR\GRAZOPREVIR
     Dosage: UNK

REACTIONS (3)
  - Autoimmune hepatitis [Unknown]
  - Transaminases increased [Unknown]
  - Autoantibody positive [Unknown]

NARRATIVE: CASE EVENT DATE: 2012
